FAERS Safety Report 24430032 (Version 1)
Quarter: 2024Q4

REPORT INFORMATION
  Report Type: Spontaneous
  Country: CN (occurrence: CN)
  Receive Date: 20241012
  Receipt Date: 20241012
  Transmission Date: 20250115
  Serious: Yes (Other)
  Sender: ROCHE
  Company Number: CN-BoehringerIngelheim-2024-BI-055746

PATIENT
  Age: 55 Year
  Sex: Male
  Weight: 75.0 kg

DRUGS (2)
  1. ALTEPLASE [Suspect]
     Active Substance: ALTEPLASE
     Indication: Thrombolysis
     Route: 042
     Dates: start: 20241002, end: 20241002
  2. ALTEPLASE [Suspect]
     Active Substance: ALTEPLASE
     Route: 042
     Dates: start: 20241002, end: 20241002

REACTIONS (1)
  - Dysphoria [Recovering/Resolving]

NARRATIVE: CASE EVENT DATE: 20241002
